FAERS Safety Report 24241643 (Version 2)
Quarter: 2024Q4

REPORT INFORMATION
  Report Type: Report from Study
  Country: US (occurrence: US)
  Receive Date: 20240823
  Receipt Date: 20241004
  Transmission Date: 20250114
  Serious: No
  Sender: ALEXION PHARMACEUTICALS
  Company Number: US-ALXN-202408USA001297US

PATIENT

DRUGS (1)
  1. ULTOMIRIS [Suspect]
     Active Substance: RAVULIZUMAB-CWVZ
     Indication: Myasthenia gravis
     Dosage: 3300 MILLIGRAM, Q8W

REACTIONS (2)
  - Chest discomfort [Recovered/Resolved]
  - Flushing [Recovered/Resolved]
